FAERS Safety Report 8373796-4 (Version None)
Quarter: 2012Q2

REPORT INFORMATION
  Report Type: 
  Country: None (occurrence: None)
  Receive Date: 20120521
  Receipt Date: 20120510
  Transmission Date: 20120825
  Serious: Yes (Congenital Anomaly, Other)
  Sender: FDA-Public Use
  Company Number: DE-ASTRAZENECA-2012SE30396

PATIENT
  Age: 0 Day
  Sex: Male
  Weight: 2.9 kg

DRUGS (5)
  1. SEROQUEL [Suspect]
     Indication: ANXIETY DISORDER
     Dosage: 50 [MG/D ]/ TILL WK 4 25MG/D, THEN 40 MG/D,REDUCTION TO 25MG/ EVERY 2ND NIGHT FROM GW 30 ON.
     Route: 064
     Dates: start: 20100906, end: 20110517
  2. OPIPRAMOL [Suspect]
     Indication: ANXIETY DISORDER
     Dosage: 150 [MG/D ]/ GW 0-4: 75MG; THEN 150 MG/D
     Route: 064
     Dates: start: 20100906, end: 20110517
  3. ACETAMINOPHEN [Concomitant]
     Indication: PAIN
     Dosage: 500 [MG/WK ]/ FROM GW 0 UNTIL 22.3 OCCASIONALLY TAKEN, APPROXIMATELY ONCE THE WEEK.
     Route: 064
     Dates: start: 20100906, end: 20110210
  4. FOLIO [Concomitant]
     Indication: PROPHYLAXIS OF NEURAL TUBE DEFECT
     Dosage: 0.4 [MG/D ]/ NOT TAKEN BEYOND WK 9.1 BECAUSE OF VOMITING
     Route: 064
     Dates: start: 20101030, end: 20101109
  5. DIMENHYDRINAT [Concomitant]
     Indication: VOMITING IN PREGNANCY
     Route: 064
     Dates: end: 20110210

REACTIONS (5)
  - VENTRICULAR SEPTAL DEFECT [None]
  - TORTICOLLIS [None]
  - CEREBRAL HAEMORRHAGE [None]
  - COORDINATION ABNORMAL [None]
  - PULMONARY VALVE STENOSIS CONGENITAL [None]
